FAERS Safety Report 5589281-9 (Version None)
Quarter: 2008Q1

REPORT INFORMATION
  Report Type: 
  Country: None (occurrence: None)
  Receive Date: 20080114
  Receipt Date: 20080108
  Transmission Date: 20080703
  Serious: Yes (Death, Other)
  Sender: FDA-Public Use
  Company Number: PHEH2007US16256

PATIENT
  Age: 54 Year
  Sex: Male
  Weight: 49.886 kg

DRUGS (9)
  1. ZOMETA [Suspect]
     Indication: METASTASES TO BONE
     Dosage: 4 MG, QW4
     Dates: start: 20070601
  2. TAXOTERE [Concomitant]
     Dosage: Q2W
     Dates: start: 20070531
  3. CARBOPLATIN [Concomitant]
     Dosage: Q2W
     Dates: start: 20070531
  4. FENTANYL [Concomitant]
     Dosage: 50 MCG/72 HOURS
     Route: 062
  5. DILAUDID [Concomitant]
     Indication: BREAKTHROUGH PAIN
     Dosage: UNK, PRN
  6. PHENERGAN HCL [Concomitant]
     Indication: NAUSEA
     Dosage: 25MG, Q4H PRN
  7. TYLENOL [Concomitant]
     Indication: PYREXIA
     Dosage: UNK, Q6H PRN
  8. MS CONTIN [Concomitant]
     Dosage: 60MG, TID
  9. MSIR [Concomitant]
     Indication: BREAKTHROUGH PAIN

REACTIONS (18)
  - ASTHENIA [None]
  - BACK PAIN [None]
  - BLOOD LACTATE DEHYDROGENASE INCREASED [None]
  - BLOOD PRESSURE INCREASED [None]
  - FIBRIN D DIMER INCREASED [None]
  - HAEMOGLOBIN DECREASED [None]
  - LUNG CANCER METASTATIC [None]
  - METASTATIC NEOPLASM [None]
  - MUSCLE MASS [None]
  - NUCLEAR MAGNETIC RESONANCE IMAGING ABNORMAL [None]
  - OSTEOARTHRITIS [None]
  - RESPIRATORY DISTRESS [None]
  - RESPIRATORY FAILURE [None]
  - SPINAL CORD COMPRESSION [None]
  - TONSILLAR DISORDER [None]
  - TREMOR [None]
  - WEIGHT ABNORMAL [None]
  - WHITE BLOOD CELL COUNT INCREASED [None]
